FAERS Safety Report 10239158 (Version 1)
Quarter: 2014Q2

REPORT INFORMATION
  Report Type: Spontaneous
  Country: US (occurrence: None)
  Receive Date: 20140613
  Receipt Date: 20140613
  Transmission Date: 20141212
  Serious: Yes (Disabling)
  Sender: FDA-Public Use
  Company Number: None

PATIENT
  Age: 56 Year
  Sex: Male
  Weight: 127.46 kg

DRUGS (1)
  1. LATANOPROST OPHTHALMIC 2.5ML AKRON INC. [Suspect]
     Dates: start: 20140612, end: 20140612

REACTIONS (3)
  - Product substitution issue [None]
  - Conjunctivitis [None]
  - Headache [None]
